FAERS Safety Report 10250756 (Version 1)
Quarter: 2014Q2

REPORT INFORMATION
  Report Type: Spontaneous
  Country: US (occurrence: US)
  Receive Date: 20140620
  Receipt Date: 20140620
  Transmission Date: 20141212
  Serious: Yes (Hospitalization, Other)
  Sender: FDA-Public Use
  Company Number: US-ELI_LILLY_AND_COMPANY-US201406003487

PATIENT
  Sex: Male

DRUGS (3)
  1. HUMALOG LISPRO [Suspect]
     Indication: DIABETES MELLITUS
     Dosage: UNK
     Route: 065
     Dates: end: 2012
  2. HUMALOG LISPRO [Suspect]
     Dosage: UNK, PRN
     Route: 065
     Dates: start: 2012
  3. LANTUS [Concomitant]
     Dosage: 10 U, QD
     Route: 065

REACTIONS (4)
  - Pituitary tumour [Recovering/Resolving]
  - Decreased appetite [Recovered/Resolved]
  - Weight decreased [Unknown]
  - Neuropathy peripheral [Unknown]
